FAERS Safety Report 15526062 (Version 4)
Quarter: 2018Q4

REPORT INFORMATION
  Report Type: Spontaneous
  Country: US (occurrence: US)
  Receive Date: 20181018
  Receipt Date: 20181130
  Transmission Date: 20190205
  Serious: No
  Sender: FDA-Public Use
  Company Number: US-JNJFOC-20181001426

PATIENT
  Age: 80 Year
  Sex: Male
  Weight: 78.47 kg

DRUGS (7)
  1. XARELTO [Suspect]
     Active Substance: RIVAROXABAN
     Indication: ATRIAL FIBRILLATION
     Route: 048
     Dates: start: 20180912
  2. XARELTO [Suspect]
     Active Substance: RIVAROXABAN
     Indication: CEREBROVASCULAR ACCIDENT PROPHYLAXIS
     Route: 048
     Dates: start: 20180912
  3. WELLBUTRIN [Concomitant]
     Active Substance: BUPROPION HYDROCHLORIDE
     Route: 065
  4. ABILIFY [Concomitant]
     Active Substance: ARIPIPRAZOLE
     Route: 065
  5. VENLAFAXINE [Concomitant]
     Active Substance: VENLAFAXINE HYDROCHLORIDE
     Route: 065
  6. LOSARTAN. [Concomitant]
     Active Substance: LOSARTAN
     Route: 065
  7. CARBIDOPA AND LEVODOPA [Concomitant]
     Active Substance: CARBIDOPA\LEVODOPA
     Route: 065

REACTIONS (5)
  - Rash pruritic [Recovered/Resolved]
  - Rash erythematous [Recovering/Resolving]
  - Rash [Not Recovered/Not Resolved]
  - Product label issue [Unknown]
  - Eczema [Unknown]

NARRATIVE: CASE EVENT DATE: 201809
